FAERS Safety Report 4886496-X (Version None)
Quarter: 2006Q1

REPORT INFORMATION
  Report Type: 
  Country: None (occurrence: None)
  Receive Date: 20060118
  Receipt Date: 20060105
  Transmission Date: 20060701
  Serious: Yes (Hospitalization, Disabling)
  Sender: FDA-Public Use
  Company Number: 2006006384

PATIENT
  Age: 75 Year
  Sex: Female

DRUGS (3)
  1. CELEBREX [Suspect]
     Indication: ARTHRITIS
  2. BEXTRA [Suspect]
     Indication: ARTHRITIS
  3. VIOXX [Suspect]
     Indication: ARTHRITIS
     Dates: start: 19990101

REACTIONS (25)
  - ABASIA [None]
  - ANHEDONIA [None]
  - ANOREXIA [None]
  - APPETITE DISORDER [None]
  - ASTHENIA [None]
  - CEREBROVASCULAR ACCIDENT [None]
  - CHEST PAIN [None]
  - COUGH [None]
  - DEPRESSION [None]
  - DISTURBANCE IN ATTENTION [None]
  - DYSPNOEA [None]
  - FATIGUE [None]
  - FEELINGS OF WORTHLESSNESS [None]
  - HYPOAESTHESIA [None]
  - MOVEMENT DISORDER [None]
  - PAIN [None]
  - PAIN IN EXTREMITY [None]
  - PALLOR [None]
  - PSYCHOMOTOR RETARDATION [None]
  - PULMONARY EMBOLISM [None]
  - RENAL DISORDER [None]
  - SLEEP DISORDER [None]
  - SWELLING [None]
  - THROMBOPHLEBITIS [None]
  - WEIGHT DECREASED [None]
